FAERS Safety Report 25269906 (Version 1)
Quarter: 2025Q2

REPORT INFORMATION
  Report Type: Spontaneous
  Country: US (occurrence: US)
  Receive Date: 20250505
  Receipt Date: 20250505
  Transmission Date: 20250716
  Serious: No
  Sender: GLAXOSMITHKLINE
  Company Number: US-GSK-US2025050393

PATIENT
  Age: 77 Year
  Sex: Female
  Weight: 48.08 kg

DRUGS (2)
  1. TRELEGY ELLIPTA [Suspect]
     Active Substance: FLUTICASONE FUROATE\UMECLIDINIUM BROMIDE\VILANTEROL TRIFENATATE
     Indication: Chronic obstructive pulmonary disease
     Dosage: 1 PUFF(S), QD
     Route: 055
     Dates: start: 20250418
  2. LEVOTHYROXINE [Concomitant]
     Active Substance: LEVOTHYROXINE
     Indication: Hypothyroidism

REACTIONS (2)
  - Bronchitis [Recovering/Resolving]
  - Insomnia [Unknown]

NARRATIVE: CASE EVENT DATE: 20250424
